FAERS Safety Report 13616377 (Version 1)
Quarter: 2017Q2

REPORT INFORMATION
  Report Type: Spontaneous
  Country: US (occurrence: US)
  Receive Date: 20170606
  Receipt Date: 20170606
  Transmission Date: 20170830
  Serious: No
  Sender: FDA-Public Use
  Company Number: None

PATIENT
  Age: 57 Year
  Sex: Male
  Weight: 84.15 kg

DRUGS (6)
  1. SULFAMETHOXAZOLE - TMP [Suspect]
     Active Substance: SULFAMETHOXAZOLE\TRIMETHOPRIM
     Indication: PROSTATITIS
     Dosage: ?          QUANTITY:1 TABLET(S);OTHER ROUTE:BY MOUTH?
     Route: 048
  2. OMEGA FISH OIL [Concomitant]
     Active Substance: FISH OIL\OMEGA-3 FATTY ACIDS
  3. VITAMIN D3 [Concomitant]
     Active Substance: CHOLECALCIFEROL
  4. MULTI VITAMIN [Concomitant]
     Active Substance: VITAMINS
  5. VITAMIN B12 [Concomitant]
     Active Substance: CYANOCOBALAMIN
  6. BABY ASPIRIN C E [Concomitant]

REACTIONS (11)
  - Abdominal pain [None]
  - Flank pain [None]
  - Abdominal distension [None]
  - Abdominal pain upper [None]
  - Back pain [None]
  - Dysphonia [None]
  - Insomnia [None]
  - Dry mouth [None]
  - Cough [None]
  - Chest discomfort [None]
  - Chest pain [None]

NARRATIVE: CASE EVENT DATE: 20170605
